FAERS Safety Report 10072127 (Version 1)
Quarter: 2014Q2

REPORT INFORMATION
  Report Type: Spontaneous
  Country: US (occurrence: US)
  Receive Date: 20140411
  Receipt Date: 20140411
  Transmission Date: 20141212
  Serious: Yes (Other)
  Sender: FDA-Public Use
  Company Number: US-BAYER-2014-052942

PATIENT
  Age: 21 Year
  Sex: Female
  Weight: 69.39 kg

DRUGS (2)
  1. YASMIN [Suspect]
  2. HYDROXYCHLOROQUINE [Concomitant]
     Dosage: 200 MG, UNK
     Route: 048

REACTIONS (2)
  - Jugular vein thrombosis [None]
  - Subclavian vein thrombosis [None]
